FAERS Safety Report 10072753 (Version 1)
Quarter: 2014Q2

REPORT INFORMATION
  Report Type: Spontaneous
  Country: US (occurrence: None)
  Receive Date: 20140409
  Receipt Date: 20140409
  Transmission Date: 20141212
  Serious: Yes (Hospitalization)
  Sender: FDA-Public Use
  Company Number: IPC201403-000151

PATIENT
  Age: 40 Year
  Sex: Male
  Weight: 85 kg

DRUGS (5)
  1. TRAMADOL (TRAMADOL) [Suspect]
     Indication: PAIN
  2. ACETAMINOPHEN (ACETAMINOPHEN) [Suspect]
     Indication: PAIN
  3. PREGABALIN (PREGABALIN) [Suspect]
     Indication: PAIN
     Dosage: EVERY MORNING
     Route: 058
  4. HYDROMORPHONE (HYDROMORPHONE) [Suspect]
     Indication: PAIN
     Dosage: 1-2 MG EVERY 4 HR.
     Route: 058
  5. NORTRIPTYLINE (NORTRIPTYLINE) [Suspect]
     Indication: PAIN
     Dosage: EVERY NIGHT

REACTIONS (6)
  - Therapeutic response decreased [None]
  - Nausea [None]
  - Vomiting [None]
  - Sedation [None]
  - Hallucination [None]
  - Leg amputation [None]
